FAERS Safety Report 4279749-X (Version None)
Quarter: 2004Q1

REPORT INFORMATION
  Report Type: 
  Country: None (occurrence: None)
  Receive Date: 20040128
  Receipt Date: 20040105
  Transmission Date: 20041129
  Serious: Yes (Hospitalization)
  Sender: FDA-Public Use
  Company Number: 200410184US

PATIENT
  Sex: Female
  Weight: 78.18 kg

DRUGS (18)
  1. TAXOTERE [Suspect]
     Indication: BREAST CANCER
     Route: 042
     Dates: start: 20031113, end: 20031113
  2. ADRIAMYCIN PFS [Suspect]
     Indication: BREAST CANCER
     Dosage: DOSE: UNK
     Dates: start: 20030814, end: 20031024
  3. CYCLOPHOSPHAMIDE [Suspect]
     Indication: BREAST CANCER
     Dosage: DOSE: UNK
     Dates: start: 20030814, end: 20031024
  4. DEXAMETHASONE [Concomitant]
     Indication: PREMEDICATION
     Dosage: DOSE: UNK
  5. LEVAQUIN [Concomitant]
     Indication: PNEUMONIA
     Route: 048
     Dates: start: 20031008, end: 20031228
  6. LEVAQUIN [Concomitant]
     Indication: UPPER RESPIRATORY TRACT INFECTION
     Route: 048
     Dates: start: 20031008, end: 20031228
  7. ROBITUSSIN [Concomitant]
     Indication: COUGH
     Route: 048
     Dates: start: 20031008
  8. AUGMENTIN [Concomitant]
     Indication: PNEUMONIA
     Route: 048
     Dates: start: 20031014, end: 20031218
  9. AUGMENTIN [Concomitant]
     Indication: UPPER RESPIRATORY TRACT INFECTION
     Route: 048
     Dates: start: 20031014, end: 20031218
  10. VIOXX [Concomitant]
     Indication: BONE PAIN
     Route: 048
     Dates: start: 20031116
  11. HYDROCODONE BITARTRATE [Concomitant]
     Indication: BONE PAIN
     Dosage: DOSE: 500/5
     Route: 048
     Dates: start: 20031205
  12. NEURONTIN [Concomitant]
     Indication: PREMEDICATION
     Route: 048
     Dates: start: 20031112
  13. PREDNISONE [Concomitant]
     Indication: UPPER RESPIRATORY TRACT INFECTION
     Dosage: DOSE: TAPERED
     Dates: start: 20031219, end: 20031228
  14. ANZEMET [Concomitant]
     Indication: PREMEDICATION
     Route: 042
     Dates: start: 20030814
  15. ZOFRAN [Concomitant]
     Indication: NAUSEA
     Route: 048
     Dates: start: 20030814
  16. PHENERGAN HCL [Concomitant]
     Indication: NAUSEA
     Dates: start: 20030814
  17. BLOOD AND RELATED PRODUCTS [Concomitant]
     Dates: start: 20030815
  18. SUDAFED S.A. [Concomitant]
     Indication: COUGH
     Route: 048
     Dates: start: 20030925

REACTIONS (9)
  - BRONCHITIS [None]
  - COUGH [None]
  - HYPOXIA [None]
  - METASTASES TO BONE [None]
  - METASTASES TO LIVER [None]
  - METASTASES TO LUNG [None]
  - METASTATIC NEOPLASM [None]
  - OXYGEN SATURATION DECREASED [None]
  - UPPER RESPIRATORY TRACT INFECTION [None]
